FAERS Safety Report 5356003-6 (Version None)
Quarter: 2007Q2

REPORT INFORMATION
  Report Type: 
  Country: None (occurrence: None)
  Receive Date: 20070613
  Receipt Date: 20070604
  Transmission Date: 20071010
  Serious: Yes (Hospitalization)
  Sender: FDA-Public Use
  Company Number: FR-SANOFI-SYNTHELABO-F01200700710

PATIENT
  Sex: Male

DRUGS (3)
  1. RADIOTHERAPY [Suspect]
     Indication: RECTAL CANCER
     Dosage: CUMMULATIVE DOSE 50 GY
     Route: 050
     Dates: end: 20061226
  2. CAPECITABINE [Suspect]
     Route: 048
     Dates: end: 20061225
  3. OXALIPLATIN [Suspect]
     Indication: RECTAL CANCER
     Route: 042
     Dates: start: 20061219, end: 20061219

REACTIONS (1)
  - ANASTOMOTIC COMPLICATION [None]
